FAERS Safety Report 7404856-X (Version None)
Quarter: 2011Q1

REPORT INFORMATION
  Report Type: 
  Country: None (occurrence: None)
  Receive Date: 20110301
  Receipt Date: 20101116
  Transmission Date: 20110831
  Serious: Yes (Death)
  Sender: FDA-Public Use
  Company Number: RB-18411-2010

PATIENT
  Age: 25 Year
  Sex: Male

DRUGS (3)
  1. ETHANOL (NONE) [Suspect]
     Indication: PRODUCT USED FOR UNKNOWN INDICATION
  2. BUPRENORPHINE [Suspect]
     Indication: PRODUCT USED FOR UNKNOWN INDICATION
  3. COCAINE (NONE) [Suspect]
     Indication: PRODUCT USED FOR UNKNOWN INDICATION

REACTIONS (1)
  - TOXICITY TO VARIOUS AGENTS [None]
